FAERS Safety Report 9696296 (Version 1)
Quarter: 2013Q4

REPORT INFORMATION
  Report Type: Report from Study
  Country: MX (occurrence: MX)
  Receive Date: 20131119
  Receipt Date: 20131119
  Transmission Date: 20140711
  Serious: Yes (Death)
  Sender: FDA-Public Use
  Company Number: PHHY2013MX131815

PATIENT
  Age: 83 Year
  Sex: Male

DRUGS (1)
  1. EXFORGE [Suspect]
     Indication: HYPERTENSION
     Dosage: 1 DF, (160MG VALS, 10MG AMLO), QD
     Route: 048

REACTIONS (2)
  - Neoplasm malignant [Fatal]
  - Emphysema [Fatal]
